FAERS Safety Report 9630905 (Version 5)
Quarter: 2014Q1

REPORT INFORMATION
  Report Type: Spontaneous
  Country: US (occurrence: US)
  Receive Date: 20131018
  Receipt Date: 20140207
  Transmission Date: 20141002
  Serious: Yes (Other)
  Sender: FDA-Public Use
  Company Number: US-PFIZER INC-2013297321

PATIENT
  Age: 53 Year
  Sex: Female

DRUGS (14)
  1. LIPITOR [Suspect]
     Indication: LOW DENSITY LIPOPROTEIN INCREASED
     Dosage: UNK
     Route: 048
     Dates: start: 200208, end: 201310
  2. LIPITOR [Suspect]
     Indication: CARDIOVASCULAR EVENT PROPHYLAXIS
     Dosage: 20 MG, 1X/DAY (EVERY NIGHT AT BEDTIME)
     Route: 048
     Dates: start: 20020816
  3. LIPITOR [Suspect]
     Indication: HYPERLIPIDAEMIA
     Dosage: 10 MG, 1X/DAY (EVERY NIGHT AT BEDTIME)
     Route: 048
     Dates: start: 20040625
  4. LIPITOR [Suspect]
     Dosage: 40 MG, 1X/DAY
     Route: 048
     Dates: start: 20061020
  5. METOPROLOL SUCCINATE [Concomitant]
     Dosage: 50 MG, 1X/DAY
     Route: 048
  6. HYZAAR [Concomitant]
     Dosage: 25-100MG, 1X/DAY
     Route: 048
  7. LORATADINE [Concomitant]
     Dosage: 10 MG, 1X/DAY
     Route: 048
  8. NITROGLYCERIN [Concomitant]
     Dosage: 0.4 MG, 3X/DAY (EVERY 8 HOURS)
     Route: 060
  9. LOPRESSOR [Concomitant]
     Dosage: 50 MG, 2X/DAY
     Route: 048
  10. PLAVIX [Concomitant]
     Dosage: 75 MG, 1X/DAY
     Route: 048
  11. IBUPROFEN [Concomitant]
     Dosage: 800 MG, 3X/DAY
     Route: 048
  12. METOPROLOL TARTRATE [Concomitant]
     Dosage: 50 MG, 2X/DAY
     Route: 048
  13. PROAIR HFA [Concomitant]
     Dosage: 2 PUFFS AS NEEDED EVERY 4 HOURS
  14. VITAMIN D [Concomitant]
     Dosage: UNK
     Route: 048

REACTIONS (1)
  - Type 2 diabetes mellitus [Unknown]
